FAERS Safety Report 12996559 (Version 1)
Quarter: 2016Q4

REPORT INFORMATION
  Report Type: Spontaneous
  Country: JP (occurrence: JP)
  Receive Date: 20161204
  Receipt Date: 20161204
  Transmission Date: 20170207
  Serious: Yes (Hospitalization)
  Sender: FDA-Public Use
  Company Number: JP-GLAXOSMITHKLINE-JP2016JPN114404

PATIENT
  Age: 65 Year
  Sex: Female
  Weight: 66 kg

DRUGS (10)
  1. LAMICTAL [Suspect]
     Active Substance: LAMOTRIGINE
     Indication: ANXIETY
     Dosage: 50 MG, 1D
     Route: 048
     Dates: start: 20160610, end: 201606
  2. LAMICTAL [Suspect]
     Active Substance: LAMOTRIGINE
     Indication: DEPRESSIVE SYMPTOM
     Dosage: 100 MG, QD
     Route: 048
     Dates: start: 20160624, end: 20160701
  3. TANDOSPIRONE CITRATE [Suspect]
     Active Substance: TANDOSPIRONE CITRATE
     Dosage: 30 MG, QD
     Dates: start: 20160624, end: 20160701
  4. MERISLON [Concomitant]
     Active Substance: BETAHISTINE MESILATE
     Dosage: 18 MG, 1D
  5. SELBEX [Concomitant]
     Active Substance: TEPRENONE
     Dosage: 3 DF, 1D
  6. PEROSPIRONE HYDROCHLORIDE HYDRATE [Concomitant]
     Active Substance: PEROSPIRONE HYDROCHLORIDE HYDRATE
     Dosage: 2 MG, 1D
  7. LAMICTAL [Suspect]
     Active Substance: LAMOTRIGINE
     Indication: BIPOLAR DISORDER
     Dosage: 25 MG, 1D
     Route: 048
     Dates: start: 20160527
  8. TASMOLIN [Concomitant]
     Active Substance: BIPERIDEN
     Dosage: 3 MG, 1D
  9. CLOTIAZEPAM [Concomitant]
     Active Substance: CLOTIAZEPAM
     Dosage: 10 MG, 1D
  10. SULPIRIDE [Concomitant]
     Active Substance: SULPIRIDE
     Dosage: 150 MG, 1D

REACTIONS (4)
  - Generalised erythema [Recovering/Resolving]
  - Pruritus [Recovering/Resolving]
  - Abdominal pain [Recovering/Resolving]
  - Eczema [Recovering/Resolving]

NARRATIVE: CASE EVENT DATE: 20160626
